FAERS Safety Report 6265420-1 (Version None)
Quarter: 2009Q3

REPORT INFORMATION
  Report Type: 
  Country: None (occurrence: None)
  Receive Date: 20090713
  Receipt Date: 20090709
  Transmission Date: 20100115
  Serious: Yes (Hospitalization, Other)
  Sender: FDA-Public Use
  Company Number: JP-BRISTOL-MYERS SQUIBB COMPANY-14623896

PATIENT
  Age: 84 Year
  Sex: Female

DRUGS (3)
  1. AVAPRO [Suspect]
     Indication: HYPERTENSION
     Dosage: TAKEN AS TAB
     Route: 048
     Dates: start: 20080731, end: 20090425
  2. PNEUMOVAX 23 [Suspect]
     Route: 058
     Dates: start: 20090107
  3. CONIEL [Concomitant]
     Indication: HYPERTENSION
     Dosage: TAKEN AS TAB
     Route: 048
     Dates: start: 20080604, end: 20090425

REACTIONS (1)
  - PRURIGO [None]
